FAERS Safety Report 20103987 (Version 1)
Quarter: 2021Q4

REPORT INFORMATION
  Report Type: Spontaneous
  Country: DE (occurrence: DE)
  Receive Date: 20211123
  Receipt Date: 20211123
  Transmission Date: 20220303
  Serious: Yes (Hospitalization)
  Sender: FDA-Public Use
  Company Number: DE-DCGMA-21188885

PATIENT
  Age: 71 Year
  Sex: Male
  Weight: 122 kg

DRUGS (3)
  1. OXALIPLATIN [Suspect]
     Active Substance: OXALIPLATIN
     Indication: Product used for unknown indication
     Dosage: 15 DOSAGE FORM
     Route: 042
  2. GRANISETRON HYDROCHLORIDE [Concomitant]
     Active Substance: GRANISETRON HYDROCHLORIDE
     Dosage: 1 MILLIGRAM
     Route: 042
  3. DEXAMETASON                        /00016001/ [Concomitant]
     Dosage: 8 MILLIGRAM
     Route: 042

REACTIONS (4)
  - Disturbance in attention [Unknown]
  - Nausea [Unknown]
  - Dizziness [Unknown]
  - Visual impairment [Unknown]

NARRATIVE: CASE EVENT DATE: 20210315
